FAERS Safety Report 17920063 (Version 2)
Quarter: 2020Q3

REPORT INFORMATION
  Report Type: Spontaneous
  Country: CN (occurrence: CN)
  Receive Date: 20200620
  Receipt Date: 20200703
  Transmission Date: 20201103
  Serious: Yes (Life-Threatening, Hospitalization, Other)
  Sender: FDA-Public Use
  Company Number: CN-B.I. PHARMACEUTICALS,INC./RIDGEFIELD-2020-BI-030966

PATIENT
  Age: 83 Year
  Sex: Male
  Weight: 52 kg

DRUGS (9)
  1. GLUCOBAY [Concomitant]
     Active Substance: ACARBOSE
     Indication: PRODUCT USED FOR UNKNOWN INDICATION
     Route: 065
  2. METHYCOBAL [Concomitant]
     Active Substance: METHYLCOBALAMIN
     Indication: DIALYSIS
     Route: 065
  3. COAPROVEL [Concomitant]
     Active Substance: HYDROCHLOROTHIAZIDE\IRBESARTAN
     Indication: HYPERTENSION
  4. APROVEL [Concomitant]
     Active Substance: IRBESARTAN
     Indication: PRODUCT USED FOR UNKNOWN INDICATION
     Route: 065
  5. COAPROVEL [Concomitant]
     Active Substance: HYDROCHLOROTHIAZIDE\IRBESARTAN
     Indication: LIPIDS ABNORMAL
     Route: 065
  6. LIPITOR [Concomitant]
     Active Substance: ATORVASTATIN CALCIUM
     Indication: HYPOLIPIDAEMIA
     Route: 065
  7. MEPTIN [Concomitant]
     Active Substance: PROCATEROL HYDROCHLORIDE
     Indication: BRONCHIECTASIS
     Route: 065
  8. ILAPRAZOLE [Concomitant]
     Active Substance: ILAPRAZOLE
     Indication: DIALYSIS
     Dosage: ENTERIC?COATED TABLETS
     Route: 065
  9. PRADAXA [Suspect]
     Active Substance: DABIGATRAN ETEXILATE MESYLATE
     Indication: ATRIAL FIBRILLATION
     Route: 048
     Dates: start: 20180601, end: 20200618

REACTIONS (5)
  - Chest discomfort [Unknown]
  - Dyspnoea [Unknown]
  - Cardiogenic shock [Unknown]
  - Gastrointestinal haemorrhage [Recovered/Resolved]
  - Haematuria [Recovered/Resolved]

NARRATIVE: CASE EVENT DATE: 20200618
